FAERS Safety Report 9683149 (Version 1)
Quarter: 2013Q4

REPORT INFORMATION
  Report Type: Spontaneous
  Country: US (occurrence: US)
  Receive Date: 20131112
  Receipt Date: 20131112
  Transmission Date: 20140711
  Serious: No
  Sender: FDA-Public Use
  Company Number: US-PFIZER INC-2013319960

PATIENT
  Age: 65 Year
  Sex: Female
  Weight: 78.92 kg

DRUGS (3)
  1. RELPAX [Suspect]
     Indication: MIGRAINE
     Dosage: 40 MG, AS NEEDED
  2. SINGULAIR [Concomitant]
     Indication: ASTHMA
     Dosage: 10 MG, 1X/DAY
  3. SYMBICORT [Concomitant]
     Indication: ASTHMA
     Dosage: 2 DF, 2X/DAY

REACTIONS (2)
  - Micturition urgency [Unknown]
  - Urinary incontinence [Unknown]
